FAERS Safety Report 5234462-7 (Version None)
Quarter: 2007Q1

REPORT INFORMATION
  Report Type: 
  Country: None (occurrence: None)
  Receive Date: 20070209
  Receipt Date: 20070209
  Transmission Date: 20070707
  Serious: Yes (Hospitalization)
  Sender: FDA-Public Use
  Company Number: FR-GLAXOSMITHKLINE-B0457397A

PATIENT
  Age: 71 Year
  Sex: Female

DRUGS (8)
  1. CLAMOXYL [Suspect]
     Indication: DENTAL DISORDER PROPHYLAXIS
     Dosage: 2G PER DAY
     Route: 048
     Dates: start: 20060321, end: 20060327
  2. TOPALGIC ( FRANCE ) [Suspect]
     Indication: PAIN PROPHYLAXIS
     Dosage: 100MG PER DAY
     Route: 048
     Dates: start: 20060322, end: 20060327
  3. XYLOCARD [Concomitant]
     Dosage: 300MG SINGLE DOSE
     Route: 030
     Dates: start: 20060321, end: 20060321
  4. LEXOMIL [Concomitant]
     Dosage: .25TAB FOUR TIMES PER DAY
     Route: 048
  5. LAROXYL 25 [Concomitant]
     Dosage: 75MG PER DAY
     Route: 048
  6. OROCAL VIT D3 [Concomitant]
     Indication: OSTEOPOROSIS
     Dosage: 2TAB PER DAY
     Route: 048
  7. IDARAC [Concomitant]
     Dosage: 1UNIT SINGLE DOSE
     Route: 048
     Dates: start: 20060320, end: 20060320
  8. SULFARLEM [Concomitant]
     Dosage: 3UNIT PER DAY
     Route: 048
     Dates: start: 19900101

REACTIONS (7)
  - ACUTE GENERALISED EXANTHEMATOUS PUSTULOSIS [None]
  - EOSINOPHILIA [None]
  - LYMPHADENOPATHY [None]
  - PRURITUS [None]
  - PYREXIA [None]
  - RASH MACULO-PAPULAR [None]
  - SKIN EXFOLIATION [None]
